FAERS Safety Report 6475534-9 (Version None)
Quarter: 2009Q4

REPORT INFORMATION
  Report Type: 
  Country: None (occurrence: None)
  Receive Date: 20091204
  Receipt Date: 20091202
  Transmission Date: 20100525
  Serious: Yes (Life-Threatening, Other)
  Sender: FDA-Public Use
  Company Number: PHHY2009ES52988

PATIENT
  Age: 67 Year
  Sex: Male

DRUGS (9)
  1. SANDIMMUNE [Suspect]
     Indication: CHOROIDITIS
     Dosage: UNK
     Route: 048
     Dates: start: 19990101, end: 20090101
  2. DACORTIN [Interacting]
     Indication: CHOROIDITIS
     Dosage: UNK
     Route: 048
     Dates: start: 19990101
  3. HUMIRA [Interacting]
     Indication: CHOROIDITIS
     Dosage: 40 MG, BIW
     Route: 058
     Dates: start: 20090101
  4. CALCIUM-SANDOZ FORTE [Concomitant]
     Route: 048
  5. FOSAMAX [Concomitant]
     Dosage: 70 MG, QW
     Route: 048
  6. OMNIC [Concomitant]
     Route: 048
  7. PLANTABEN [Concomitant]
  8. RANITIDINE [Concomitant]
  9. TIMOFTOL [Concomitant]

REACTIONS (3)
  - ADENOMATOUS POLYPOSIS COLI [None]
  - DRUG INTERACTION [None]
  - RECTOSIGMOID CANCER [None]
